FAERS Safety Report 21097705 (Version 2)
Quarter: 2023Q2

REPORT INFORMATION
  Report Type: Other
  Country: US (occurrence: None)
  Receive Date: 20220719
  Receipt Date: 20230627
  Transmission Date: 20230722
  Serious: Yes (Other)
  Sender: FDA-Public Use
  Company Number: US-ROCHE-3130187

PATIENT
  Sex: Male

DRUGS (1)
  1. CELLCEPT [Suspect]
     Active Substance: MYCOPHENOLATE MOFETIL
     Indication: Heart transplant
     Dosage: ONE 250MG CAPSULE BID
     Route: 065

REACTIONS (3)
  - Spinal fracture [Unknown]
  - Ill-defined disorder [Unknown]
  - Off label use [Unknown]
